FAERS Safety Report 5860587-9 (Version None)
Quarter: 2008Q3

REPORT INFORMATION
  Report Type: 
  Country: None (occurrence: None)
  Receive Date: 20080827
  Receipt Date: 20071030
  Transmission Date: 20090109
  Serious: No
  Sender: FDA-Public Use
  Company Number: US-ABBOTT-07P-163-0422793-00

PATIENT
  Age: 83 Year
  Sex: Male

DRUGS (2)
  1. NIASPAN [Suspect]
     Indication: BLOOD CHOLESTEROL INCREASED
     Route: 048
     Dates: start: 20071029
  2. NIASPAN [Suspect]
     Route: 048
     Dates: start: 20060101, end: 20071028

REACTIONS (1)
  - FLUSHING [None]
